FAERS Safety Report 15346213 (Version 1)
Quarter: 2018Q3

REPORT INFORMATION
  Report Type: Spontaneous
  Country: US (occurrence: US)
  Receive Date: 20180904
  Receipt Date: 20180904
  Transmission Date: 20181010
  Serious: Yes (Hospitalization)
  Sender: FDA-Public Use
  Company Number: US-AMGEN-USASP2018120392

PATIENT
  Sex: Male
  Weight: 63.49 kg

DRUGS (1)
  1. REPATHA [Suspect]
     Active Substance: EVOLOCUMAB
     Indication: BLOOD CHOLESTEROL ABNORMAL
     Dosage: 140 MG, Q2WK
     Route: 065
     Dates: start: 20180730

REACTIONS (7)
  - Pain [Recovering/Resolving]
  - Chills [Recovering/Resolving]
  - Night sweats [Recovering/Resolving]
  - Back pain [Recovering/Resolving]
  - Liver function test abnormal [Unknown]
  - Renal function test abnormal [Unknown]
  - Pyrexia [Recovering/Resolving]

NARRATIVE: CASE EVENT DATE: 2018
